FAERS Safety Report 9439660 (Version 4)
Quarter: 2014Q1

REPORT INFORMATION
  Report Type: Spontaneous
  Country: US (occurrence: US)
  Receive Date: 20130805
  Receipt Date: 20140205
  Transmission Date: 20141002
  Serious: Yes (Other)
  Sender: FDA-Public Use
  Company Number: US-PFIZER INC-2013223041

PATIENT
  Age: 64 Year
  Sex: Female

DRUGS (4)
  1. XALKORI [Suspect]
     Indication: LUNG NEOPLASM MALIGNANT
     Dosage: 250 MG, 2X/DAY
     Route: 048
     Dates: start: 20130426
  2. XALKORI [Interacting]
     Dosage: 250 MG, 2X/DAY
  3. XALKORI [Interacting]
     Dosage: 250 MG, 2X/DAY
     Route: 048
     Dates: start: 201304
  4. DIFLUCAN [Interacting]
     Dosage: UNK

REACTIONS (11)
  - Cellulitis [Unknown]
  - Oesophageal infection [Unknown]
  - Drug interaction [Unknown]
  - Bradycardia [Unknown]
  - Atrioventricular block [Unknown]
  - Dysgeusia [Unknown]
  - Nausea [Unknown]
  - Throat irritation [Unknown]
  - Disease progression [Unknown]
  - Lung neoplasm malignant [Unknown]
  - Ulcer [Unknown]
